FAERS Safety Report 7805144-X (Version None)
Quarter: 2011Q4

REPORT INFORMATION
  Report Type: 
  Country: None (occurrence: None)
  Receive Date: 20111010
  Receipt Date: 20111005
  Transmission Date: 20120403
  Serious: Yes (Death, Other)
  Sender: FDA-Public Use
  Company Number: PHHY2010US63185

PATIENT
  Sex: Male

DRUGS (2)
  1. GLEEVEC [Suspect]
     Indication: MALIGNANT MELANOMA
     Dosage: 400 MG, QD
     Route: 048
  2. GLEEVEC [Suspect]
     Indication: RECTAL CANCER
     Dosage: 400 MG, QD
     Route: 048
     Dates: start: 20100601, end: 20100831

REACTIONS (3)
  - NEOPLASM MALIGNANT [None]
  - DEATH [None]
  - FATIGUE [None]
